FAERS Safety Report 5898927-7 (Version None)
Quarter: 2008Q3

REPORT INFORMATION
  Report Type: 
  Country: None (occurrence: None)
  Receive Date: 20080925
  Receipt Date: 20080915
  Transmission Date: 20090109
  Serious: Yes (Hospitalization)
  Sender: FDA-Public Use
  Company Number: US-SANOFI-SYNTHELABO-D01200805512

PATIENT
  Sex: Female
  Weight: 74 kg

DRUGS (11)
  1. JANUVIA [Concomitant]
     Dosage: 100 MG
     Route: 065
  2. TOPROL-XL [Concomitant]
     Dosage: 100 MG
     Route: 065
  3. ALDACTONE [Concomitant]
     Dosage: 50 MG
     Route: 065
  4. MONOPRIL [Concomitant]
     Dosage: 40 MG
     Route: 065
  5. LIPITOR [Concomitant]
     Dosage: 80 MG
     Route: 065
  6. DARVOCET [Concomitant]
     Dosage: Q4H PRN
     Route: 065
  7. BISACODYL [Concomitant]
     Dosage: 5 MG PRN
     Route: 065
  8. OXYCONTIN [Concomitant]
     Dosage: PRN
     Route: 065
  9. GLYCOLAX [Concomitant]
     Dosage: 255 GR
  10. ASA LOW DOSE [Concomitant]
     Indication: ACUTE CORONARY SYNDROME
     Dosage: AT LEAST 300 MG D1; 75-100 MG FROM D2 TO D30
     Route: 048
     Dates: start: 20080409, end: 20080505
  11. CLOPIDOGREL [Suspect]
     Indication: ACUTE CORONARY SYNDROME
     Dosage: 300 MG (+PLACEBO) D1 FOLLOWED BY 75 MG (+PLACEBO) D2 TO D7; 75 MG FROM D8 TO 30
     Route: 048
     Dates: start: 20080409, end: 20080505

REACTIONS (1)
  - CROHN'S DISEASE [None]
